FAERS Safety Report 7332607-6 (Version None)
Quarter: 2011Q1

REPORT INFORMATION
  Report Type: 
  Country: None (occurrence: None)
  Receive Date: 20110304
  Receipt Date: 20110228
  Transmission Date: 20110831
  Serious: Yes (Death, Other)
  Sender: FDA-Public Use
  Company Number: US-PFIZER INC-2005116935

PATIENT
  Sex: Female

DRUGS (4)
  1. ALL OTHER THERAPEUTIC PRODUCTS [Suspect]
  2. NEURONTIN [Suspect]
     Indication: PAIN
     Dosage: 300 MG, UNK
     Dates: start: 20000802
  3. NEURONTIN [Suspect]
     Indication: NEURALGIA
     Dosage: 600 MG, UNK
     Dates: start: 20020326
  4. NEURONTIN [Suspect]
     Dosage: 800 MG, UNK
     Dates: start: 20011206

REACTIONS (7)
  - DRUG INEFFECTIVE [None]
  - DEPRESSION [None]
  - DRUG DEPENDENCE [None]
  - NEURALGIA [None]
  - INTENTIONAL OVERDOSE [None]
  - COMPLETED SUICIDE [None]
  - DECREASED APPETITE [None]
